FAERS Safety Report 9557475 (Version 2)
Quarter: 2013Q4

REPORT INFORMATION
  Report Type: Spontaneous
  Country: GR (occurrence: None)
  Receive Date: 20130924
  Receipt Date: 20131009
  Transmission Date: 20140711
  Serious: Yes (Death)
  Sender: FDA-Public Use
  Company Number: 2013MPI00543

PATIENT
  Age: 22 Year
  Sex: 0

DRUGS (1)
  1. BRENTUXIMAB VEDOTIN [Suspect]
     Indication: PRODUCT USED FOR UNKNOWN INDICATION
     Dosage: 120 MG, Q21D, INTRAVENOUS
     Route: 042
     Dates: start: 20130621, end: 20130823

REACTIONS (2)
  - Death [None]
  - Sepsis [None]
